FAERS Safety Report 6835417-9 (Version None)
Quarter: 2010Q3

REPORT INFORMATION
  Report Type: 
  Country: None (occurrence: None)
  Receive Date: 20100712
  Receipt Date: 20100712
  Transmission Date: 20110219
  Serious: Yes (Other)
  Sender: FDA-Public Use
  Company Number: None

PATIENT

DRUGS (1)
  1. APLISOL [Suspect]
     Indication: MYCOBACTERIUM TUBERCULOSIS COMPLEX TEST

REACTIONS (4)
  - CELLULITIS [None]
  - DRUG HYPERSENSITIVITY [None]
  - ERYTHEMA [None]
  - PRURITUS [None]
